FAERS Safety Report 16960309 (Version 1)
Quarter: 2019Q4

REPORT INFORMATION
  Report Type: Spontaneous
  Country: US (occurrence: US)
  Receive Date: 20191025
  Receipt Date: 20191025
  Transmission Date: 20200122
  Serious: No
  Sender: FDA-Public Use
  Company Number: US-PFIZER INC-2019459507

PATIENT
  Age: 62 Year
  Sex: Male

DRUGS (2)
  1. GENOTROPIN MQ [Suspect]
     Active Substance: SOMATROPIN
     Dosage: 0.6 MG, DAILY
  2. ANDROGEL [Suspect]
     Active Substance: TESTOSTERONE
     Dosage: UNK
     Route: 061

REACTIONS (2)
  - Anger [Unknown]
  - Aggression [Unknown]
